FAERS Safety Report 6904294-X (Version None)
Quarter: 2010Q3

REPORT INFORMATION
  Report Type: 
  Country: None (occurrence: None)
  Receive Date: 20100804
  Receipt Date: 20090421
  Transmission Date: 20110219
  Serious: No
  Sender: FDA-Public Use
  Company Number: US-PFIZER INC-2009173983

PATIENT
  Sex: Female
  Weight: 71.6 kg

DRUGS (3)
  1. LYRICA [Suspect]
     Indication: RADICULOPATHY
     Dosage: 75 MG, 2X/DAY
     Dates: start: 20090127
  2. LYRICA [Suspect]
     Indication: SPINAL COLUMN STENOSIS
  3. IBUPROFEN [Concomitant]
     Dosage: UNK

REACTIONS (2)
  - ADVERSE REACTION [None]
  - MOOD ALTERED [None]
